FAERS Safety Report 7933472-6 (Version None)
Quarter: 2011Q4

REPORT INFORMATION
  Report Type: 
  Country: None (occurrence: None)
  Receive Date: 20111122
  Receipt Date: 20111117
  Transmission Date: 20120403
  Serious: Yes (Other)
  Sender: FDA-Public Use
  Company Number: JP-PFIZER INC-2011282296

PATIENT
  Age: 48 Year
  Sex: Male

DRUGS (1)
  1. ZITHROMAX [Suspect]
     Indication: CHRONIC SINUSITIS
     Dosage: UNK
     Route: 048
     Dates: start: 20110917, end: 20110918

REACTIONS (2)
  - RHABDOMYOLYSIS [None]
  - DIARRHOEA [None]
